FAERS Safety Report 5470866-5 (Version None)
Quarter: 2007Q3

REPORT INFORMATION
  Report Type: 
  Country: None (occurrence: None)
  Receive Date: 20070925
  Receipt Date: 20070830
  Transmission Date: 20080115
  Serious: Yes (Death, Hospitalization)
  Sender: FDA-Public Use
  Company Number: 6037425

PATIENT
  Age: 81 Year
  Sex: Female

DRUGS (6)
  1. FUROSEMIDE [Suspect]
     Indication: DRUG USE FOR UNKNOWN INDICATION
     Route: 042
  2. RAMIPRIL [Suspect]
     Indication: DRUG USE FOR UNKNOWN INDICATION
  3. CELECOXIB [Suspect]
     Indication: DRUG USE FOR UNKNOWN INDICATION
  4. CIPROFLOXACIN [Suspect]
     Indication: RESPIRATORY TRACT INFECTION
  5. NITROGLYCERIN [Suspect]
     Indication: DRUG USE FOR UNKNOWN INDICATION
  6. AMOXICILLIN + CLAVULANIC ACID(AMOXICILLIN, CLAVULANIC ACID) [Concomitant]

REACTIONS (3)
  - DEHYDRATION [None]
  - RENAL FAILURE ACUTE [None]
  - SOMNOLENCE [None]
